FAERS Safety Report 5818669-3 (Version None)
Quarter: 2008Q3

REPORT INFORMATION
  Report Type: 
  Country: None (occurrence: None)
  Receive Date: 20080717
  Receipt Date: 20080717
  Transmission Date: 20090109
  Serious: Yes (Hospitalization)
  Sender: FDA-Public Use
  Company Number: None

PATIENT
  Sex: Female
  Weight: 66 kg

DRUGS (3)
  1. CYTARABINE [Suspect]
     Dosage: 1190 MG
  2. DAUNORUBICIN HCL [Suspect]
     Dosage: 462 MG
  3. ETOPOSIDE [Suspect]
     Dosage: 510 MG

REACTIONS (7)
  - BACTERIAL INFECTION [None]
  - BLOOD BILIRUBIN INCREASED [None]
  - BLOOD CULTURE POSITIVE [None]
  - HAEMODIALYSIS [None]
  - LUNG INFILTRATION [None]
  - RENAL FAILURE [None]
  - SEPSIS [None]
